FAERS Safety Report 4985537-9 (Version None)
Quarter: 2006Q2

REPORT INFORMATION
  Report Type: 
  Country: None (occurrence: None)
  Receive Date: 20060428
  Receipt Date: 20051021
  Transmission Date: 20061013
  Serious: No
  Sender: FDA-Public Use
  Company Number: US-GLAXOSMITHKLINE-A0579270A

PATIENT
  Age: 16 Year
  Sex: Female
  Weight: 47.3 kg

DRUGS (2)
  1. FLOVENT [Suspect]
     Indication: ASTHMA
     Dosage: 220MCG TWICE PER DAY
     Route: 055
     Dates: start: 20040701
  2. ALBUTEROL SULFATE AUTOHALER [Concomitant]
     Dosage: 2PUFF AS REQUIRED
     Route: 065
     Dates: start: 20040701

REACTIONS (2)
  - ARTHRALGIA [None]
  - SKIN STRIAE [None]
